FAERS Safety Report 6007189-1 (Version None)
Quarter: 2008Q4

REPORT INFORMATION
  Report Type: 
  Country: None (occurrence: None)
  Receive Date: 20081217
  Receipt Date: 20080318
  Transmission Date: 20090506
  Serious: Yes (Other)
  Sender: FDA-Public Use
  Company Number: US-ASTRAZENECA-2008UW03739

PATIENT
  Age: 21061 Day
  Sex: Male
  Weight: 89.4 kg

DRUGS (1)
  1. CRESTOR [Suspect]
     Indication: BLOOD CHOLESTEROL INCREASED
     Route: 048
     Dates: start: 20070628, end: 20080227

REACTIONS (1)
  - BLOOD CREATINE PHOSPHOKINASE INCREASED [None]
